FAERS Safety Report 12092593 (Version 1)
Quarter: 2016Q1

REPORT INFORMATION
  Report Type: Spontaneous
  Country: US (occurrence: None)
  Receive Date: 20160218
  Receipt Date: 20160218
  Transmission Date: 20160526
  Serious: Yes (Hospitalization)
  Sender: FDA-Public Use
  Company Number: None

PATIENT
  Age: 45 Year
  Sex: Female
  Weight: 61.8 kg

DRUGS (7)
  1. VIEKIRA PAK [Suspect]
     Active Substance: DASABUVIR\OMBITASVIR\PARITAPREVIR\RITONAVIR
     Dosage: 12.5/75/50/250 MG, BID, PO
     Route: 048
     Dates: start: 20151104
  2. ASPIRIN. [Concomitant]
     Active Substance: ASPIRIN
  3. SUBOXONE [Concomitant]
     Active Substance: BUPRENORPHINE HYDROCHLORIDE\NALOXONE HYDROCHLORIDE
  4. MULTIVITAMIN [Concomitant]
     Active Substance: VITAMINS
  5. OMEPRAZOLE. [Concomitant]
     Active Substance: OMEPRAZOLE
  6. ALPRAZOLAM. [Concomitant]
     Active Substance: ALPRAZOLAM
  7. RIBAVIRIN 200 MG [Suspect]
     Active Substance: RIBAVIRIN
     Indication: HEPATITIS C
     Route: 048
     Dates: start: 20151104, end: 20151116

REACTIONS (8)
  - Nausea [None]
  - Diarrhoea [None]
  - Myalgia [None]
  - Corona virus infection [None]
  - Pyrexia [None]
  - Abdominal pain [None]
  - Sinusitis [None]
  - Muscle spasms [None]

NARRATIVE: CASE EVENT DATE: 20151116
